FAERS Safety Report 5130356-6 (Version None)
Quarter: 2006Q4

REPORT INFORMATION
  Report Type: 
  Country: None (occurrence: None)
  Receive Date: 20061013
  Receipt Date: 20061009
  Transmission Date: 20070319
  Serious: Yes (Death)
  Sender: FDA-Public Use
  Company Number: HQWYE772109OCT06

PATIENT
  Age: 63 Year
  Sex: Male

DRUGS (7)
  1. INDERAL LA [Suspect]
     Indication: ESSENTIAL TREMOR
     Dosage: SEE IMAGE
     Route: 048
     Dates: start: 20020305
  2. KLONOPIN [Suspect]
     Indication: ESSENTIAL TREMOR
     Dosage: 0.5 MG, 1 IN 4 DAILY, ORAL
     Route: 048
     Dates: start: 19960229, end: 20000101
  3. RESTORIL [Suspect]
  4. VALIUM [Suspect]
     Dosage: 20-40 MG DAILY, ORAL
     Route: 048
     Dates: start: 19990714
  5. VALIUM [Suspect]
     Dosage: 20-40 MG DAILY, ORAL
     Route: 048
     Dates: start: 20020305
  6. LIPITOR [Concomitant]
  7. NEURONTIN [Concomitant]

REACTIONS (10)
  - ABNORMAL BEHAVIOUR [None]
  - ACCIDENT [None]
  - COORDINATION ABNORMAL [None]
  - DISTURBANCE IN ATTENTION [None]
  - DYSARTHRIA [None]
  - FALL [None]
  - HEAD INJURY [None]
  - MENTAL IMPAIRMENT [None]
  - TRAUMATIC BRAIN INJURY [None]
  - TREMOR [None]
